FAERS Safety Report 21450398 (Version 1)
Quarter: 2022Q4

REPORT INFORMATION
  Report Type: Spontaneous
  Country: US (occurrence: US)
  Receive Date: 20221013
  Receipt Date: 20221013
  Transmission Date: 20230113
  Serious: Yes (Other)
  Sender: FDA-Public Use
  Company Number: US-BAYER-2022A139612

PATIENT
  Sex: Female

DRUGS (1)
  1. MIRENA [Suspect]
     Active Substance: LEVONORGESTREL
     Indication: Contraception
     Dosage: 20?G/DAY
     Route: 015
     Dates: start: 20220610, end: 20220924

REACTIONS (3)
  - Genital haemorrhage [None]
  - Pelvic pain [None]
  - Medical device discomfort [None]

NARRATIVE: CASE EVENT DATE: 20220101
